FAERS Safety Report 7263403-6 (Version None)
Quarter: 2011Q1

REPORT INFORMATION
  Report Type: 
  Country: None (occurrence: None)
  Receive Date: 20110130
  Receipt Date: 20101025
  Transmission Date: 20110831
  Serious: No
  Sender: FDA-Public Use
  Company Number: US-ABBOTT-10P-163-0681780-00

PATIENT
  Sex: Female
  Weight: 99.88 kg

DRUGS (2)
  1. HUMIRA [Suspect]
     Indication: PSORIASIS
     Route: 058
     Dates: start: 20100801, end: 20100801
  2. HUMIRA [Suspect]
     Route: 058
     Dates: start: 20100901

REACTIONS (2)
  - CHEST PAIN [None]
  - BACK PAIN [None]
